FAERS Safety Report 9124295 (Version 1)
Quarter: 2013Q1

REPORT INFORMATION
  Report Type: Spontaneous
  Country: US (occurrence: US)
  Receive Date: 20130227
  Receipt Date: 20130227
  Transmission Date: 20140127
  Serious: No
  Sender: FDA-Public Use
  Company Number: US-ASTRAZENECA-2013SE11948

PATIENT
  Age: 72 Year
  Sex: Female
  Weight: 68 kg

DRUGS (1)
  1. SYMBICORT PMDI [Suspect]
     Indication: EMPHYSEMA
     Dosage: 160/4.5 MCG,2 PUFFS ,TWO TIMES A DAY
     Route: 055
     Dates: start: 201301

REACTIONS (4)
  - Pneumonia [Recovered/Resolved]
  - Pertussis [Recovered/Resolved]
  - Intentional drug misuse [Unknown]
  - Off label use [Unknown]
